FAERS Safety Report 19994166 (Version 1)
Quarter: 2021Q4

REPORT INFORMATION
  Report Type: Spontaneous
  Country: US (occurrence: US)
  Receive Date: 20211025
  Receipt Date: 20211025
  Transmission Date: 20220303
  Serious: Yes (Life-Threatening, Hospitalization, Other)
  Sender: FDA-Public Use
  Company Number: US-BRISTOL-MYERS SQUIBB COMPANY-BMS-2021-110636

PATIENT
  Age: 69 Year
  Sex: Female

DRUGS (1)
  1. NIVOLUMAB [Suspect]
     Active Substance: NIVOLUMAB
     Indication: Malignant melanoma
     Dosage: TOTAL OF TWELVE CYCLES OF ADJUVANT NIVOLUMAB 480 MG OVER ONE YEAR
     Route: 042

REACTIONS (3)
  - Diabetic ketoacidosis [Recovering/Resolving]
  - Immune-mediated encephalitis [Recovering/Resolving]
  - Immune-mediated adrenal insufficiency [Recovering/Resolving]
